FAERS Safety Report 23149152 (Version 1)
Quarter: 2023Q4

REPORT INFORMATION
  Report Type: Spontaneous
  Country: US (occurrence: US)
  Receive Date: 20231106
  Receipt Date: 20231106
  Transmission Date: 20240109
  Serious: No
  Sender: FDA-Public Use
  Company Number: US-PARATEK PHARMACEUTICALS, INC.-2022PTK00433

PATIENT
  Age: 46 Year
  Sex: Female
  Weight: 272.11 kg

DRUGS (8)
  1. NUZYRA [Suspect]
     Active Substance: OMADACYCLINE
     Indication: Cellulitis
     Dosage: 450 MG, 1X/DAY
     Route: 048
     Dates: start: 20221107, end: 20221107
  2. NUZYRA [Suspect]
     Active Substance: OMADACYCLINE
     Indication: Abdominal wall wound
  3. LEVOTHYROXINE [Concomitant]
     Active Substance: LEVOTHYROXINE
     Dosage: UNK
  4. BUSPIRONE [Concomitant]
     Active Substance: BUSPIRONE HYDROCHLORIDE
     Dosage: 7.5 MG, AS NEEDED
  5. TIZANIDINE [Concomitant]
     Active Substance: TIZANIDINE
     Dosage: 4 MG TID PRN
  6. LASIX [Concomitant]
     Active Substance: FUROSEMIDE
     Dosage: UNK
  7. PANTOPRAZOLE [Concomitant]
     Active Substance: PANTOPRAZOLE
     Dosage: UNK
  8. PRAVASTATIN [Concomitant]
     Active Substance: PRAVASTATIN
     Dosage: 40 MG, 1X/DAY AT BEDTIME

REACTIONS (1)
  - Tachycardia [Recovered/Resolved]

NARRATIVE: CASE EVENT DATE: 20221107
